FAERS Safety Report 16224545 (Version 1)
Quarter: 2019Q2

REPORT INFORMATION
  Report Type: Spontaneous
  Country: US (occurrence: US)
  Receive Date: 20190422
  Receipt Date: 20190422
  Transmission Date: 20190711
  Serious: No
  Sender: FDA-Public Use
  Company Number: US-FOUNDATIONCONSUMERHC-2018-US-021727

PATIENT
  Age: 27 Year
  Sex: Female
  Weight: 55.34 kg

DRUGS (2)
  1. CLINDAMYCIN CREAM [Concomitant]
     Active Substance: CLINDAMYCIN
  2. PLAN B ONE-STEP [Suspect]
     Active Substance: LEVONORGESTREL
     Indication: POST COITAL CONTRACEPTION
     Dosage: 1.5 MG
     Route: 048
     Dates: start: 20181215, end: 20181215

REACTIONS (2)
  - Back pain [Recovered/Resolved]
  - Pelvic pain [Not Recovered/Not Resolved]

NARRATIVE: CASE EVENT DATE: 20181218
